FAERS Safety Report 10446121 (Version 2)
Quarter: 2014Q3

REPORT INFORMATION
  Report Type: Spontaneous
  Country: US (occurrence: US)
  Receive Date: 20140910
  Receipt Date: 20140925
  Transmission Date: 20150326
  Serious: Yes (Death, Other)
  Sender: FDA-Public Use
  Company Number: US-AMGEN-USASP2014067977

PATIENT
  Age: 65 Year
  Sex: Female

DRUGS (2)
  1. NEUPOGEN [Suspect]
     Active Substance: FILGRASTIM
     Indication: FEBRILE NEUTROPENIA
  2. NEUPOGEN [Suspect]
     Active Substance: FILGRASTIM
     Indication: SEPTIC SHOCK
     Dosage: UNK
     Route: 065

REACTIONS (6)
  - Intestinal ischaemia [Unknown]
  - Arterial thrombosis [Unknown]
  - Drug ineffective [Unknown]
  - Lactic acidosis [Unknown]
  - Death [Fatal]
  - Systemic candida [Unknown]
